FAERS Safety Report 8409759-X (Version None)
Quarter: 2012Q2

REPORT INFORMATION
  Report Type: 
  Country: None (occurrence: None)
  Receive Date: 20120605
  Receipt Date: 20120530
  Transmission Date: 20120825
  Serious: Yes (Hospitalization, Other)
  Sender: FDA-Public Use
  Company Number: US-AMGEN-USASP2011066103

PATIENT
  Age: 60 Year
  Sex: Female

DRUGS (4)
  1. ARANESP [Suspect]
     Dosage: 300 MUG, Q3WK
     Route: 058
     Dates: start: 20071016, end: 20080409
  2. PROCRIT [Suspect]
     Indication: BREAST CANCER METASTATIC
     Dosage: 60000 UNIT, Q2WK
     Route: 058
     Dates: start: 20091219
  3. ARANESP [Suspect]
     Indication: BREAST CANCER METASTATIC
     Dosage: 200 MUG, Q3WK
     Route: 058
     Dates: start: 20070806, end: 20071002
  4. ARANESP [Suspect]
     Dosage: 500 MUG, Q3WK
     Route: 058
     Dates: start: 20080220, end: 20091020

REACTIONS (3)
  - HOSPITALISATION [None]
  - BREAST CANCER RECURRENT [None]
  - BREAST CANCER METASTATIC [None]
